FAERS Safety Report 25793059 (Version 2)
Quarter: 2025Q3

REPORT INFORMATION
  Report Type: Report from Study
  Country: JP (occurrence: JP)
  Receive Date: 20250911
  Receipt Date: 20250915
  Transmission Date: 20251021
  Serious: Yes (Death)
  Sender: PFIZER
  Company Number: JP-PFIZER INC-PV202500108738

PATIENT
  Age: 55 Year
  Sex: Female
  Weight: 44 kg

DRUGS (2)
  1. TALZENNA [Suspect]
     Active Substance: TALAZOPARIB TOSYLATE
     Indication: Breast cancer recurrent
     Dosage: 1 MG, 1X/DAY
     Dates: start: 20250522, end: 20250726
  2. SODIUM FERROUS CITRATE [Concomitant]
     Active Substance: SODIUM FERROUS CITRATE
     Indication: Anaemia
     Route: 048
     Dates: start: 20250508, end: 20250723

REACTIONS (2)
  - Hepatic failure [Fatal]
  - Malignant neoplasm progression [Fatal]
